FAERS Safety Report 5357344-9 (Version None)
Quarter: 2007Q2

REPORT INFORMATION
  Report Type: 
  Country: None (occurrence: None)
  Receive Date: 20070614
  Receipt Date: 20070613
  Transmission Date: 20071010
  Serious: Yes (Other)
  Sender: FDA-Public Use
  Company Number: A0655184A

PATIENT
  Age: 66 Year
  Sex: Male

DRUGS (5)
  1. SENSODYNE-F [Suspect]
     Indication: SENSITIVITY OF TEETH
     Dates: start: 20050101
  2. SENSODYNE-F [Suspect]
     Indication: SENSITIVITY OF TEETH
  3. LIPITOR [Concomitant]
  4. PEPCID [Concomitant]
  5. AZMACORT [Concomitant]

REACTIONS (2)
  - ASTHMA [None]
  - DYSPNOEA [None]
